FAERS Safety Report 8922935 (Version 1)
Quarter: 2012Q4

REPORT INFORMATION
  Report Type: 
  Country: US (occurrence: US)
  Receive Date: 20121123
  Receipt Date: 20121123
  Transmission Date: 20130627
  Serious: No
  Sender: FDA-Public Use
  Company Number: US-BAYER-2012-122552

PATIENT
  Sex: Female

DRUGS (5)
  1. ALEVE CAPLET/TABLET,MIDOL EXTENDED RELIEF CAPLET [Suspect]
     Indication: FIBROMYALGIA
     Dosage: 12 DF, PRN
     Dates: start: 201211
  2. ALEVE CAPLET/TABLET,MIDOL EXTENDED RELIEF CAPLET [Suspect]
     Indication: CHRONIC PAIN
  3. BAYER ADVANCED ASPIRIN EXTRA STRENGTH [Suspect]
     Indication: CHRONIC PAIN
     Dosage: 5 DF, UNK
  4. RITALIN [Concomitant]
  5. CYMBALTA [Concomitant]

REACTIONS (2)
  - Overdose [None]
  - Incorrect dose administered [None]
